FAERS Safety Report 15379214 (Version 2)
Quarter: 2020Q1

REPORT INFORMATION
  Report Type: Spontaneous
  Country: DE (occurrence: DE)
  Receive Date: 20180913
  Receipt Date: 20200305
  Transmission Date: 20200409
  Serious: Yes (Life-Threatening)
  Sender: FDA-Public Use
  Company Number: PHHY2018DE098127

PATIENT
  Sex: Female

DRUGS (1)
  1. METOPROLOLSUCCINAT ^1A FARMA^ [Suspect]
     Active Substance: METOPROLOL SUCCINATE
     Indication: PRODUCT USED FOR UNKNOWN INDICATION
     Dosage: UNK
     Route: 065

REACTIONS (3)
  - Product size issue [Unknown]
  - Suffocation feeling [Unknown]
  - Product use complaint [Unknown]
